FAERS Safety Report 4829422-1 (Version None)
Quarter: 2005Q4

REPORT INFORMATION
  Report Type: 
  Country: None (occurrence: None)
  Receive Date: 20051028
  Receipt Date: 20050621
  Transmission Date: 20060501
  Serious: Yes (Hospitalization)
  Sender: FDA-Public Use
  Company Number: US015498

PATIENT
  Age: 74 Year
  Sex: Male

DRUGS (9)
  1. PROVIGIL [Suspect]
     Indication: SOMNOLENCE
     Dosage: 100 MG QAM ORAL
     Route: 048
     Dates: start: 20031201, end: 20040401
  2. PROVIGIL [Suspect]
     Indication: SOMNOLENCE
     Dosage: 50 MG BID ORAL
     Route: 048
     Dates: start: 20040401, end: 20040701
  3. PROVIGIL [Suspect]
     Indication: SOMNOLENCE
     Dosage: 200 MG BID ORAL
     Route: 048
     Dates: start: 20040701, end: 20050201
  4. PROVIGIL [Suspect]
     Indication: SOMNOLENCE
     Dosage: 100 MG BID ORAL
     Route: 048
     Dates: start: 20050201
  5. CYMBALTA [Suspect]
     Indication: DEPRESSION
     Dosage: 20 MG
     Dates: start: 20050501
  6. GABAPENTIN [Concomitant]
  7. LEVOTHYROXINE SODIUM [Concomitant]
  8. CYTOMEL [Concomitant]
  9. XANAX [Concomitant]

REACTIONS (4)
  - ABDOMINAL DISCOMFORT [None]
  - CHEST PAIN [None]
  - HEART RATE INCREASED [None]
  - HYPERHIDROSIS [None]
